FAERS Safety Report 15427062 (Version 3)
Quarter: 2018Q4

REPORT INFORMATION
  Report Type: Report from Study
  Country: US (occurrence: US)
  Receive Date: 20180925
  Receipt Date: 20181026
  Transmission Date: 20190204
  Serious: No
  Sender: FDA-Public Use
  Company Number: PHEH2018US039506

PATIENT
  Sex: Female

DRUGS (1)
  1. COSENTYX [Suspect]
     Active Substance: SECUKINUMAB
     Indication: PSORIASIS
     Dosage: 300 MG, QMO
     Route: 058

REACTIONS (10)
  - Injection site pain [Unknown]
  - Injection site bruising [Unknown]
  - Psoriasis [Unknown]
  - Injection site mass [Unknown]
  - Injection site haemorrhage [Unknown]
  - Skin exfoliation [Unknown]
  - Rash [Unknown]
  - Pruritus [Unknown]
  - Drug ineffective [Unknown]
  - Joint swelling [Unknown]
